FAERS Safety Report 17622812 (Version 1)
Quarter: 2020Q2

REPORT INFORMATION
  Report Type: Spontaneous
  Country: US (occurrence: US)
  Receive Date: 20200403
  Receipt Date: 20200403
  Transmission Date: 20200713
  Serious: Yes (Hospitalization)
  Sender: FDA-Public Use
  Company Number: None

PATIENT
  Age: 48 Year
  Sex: Male
  Weight: 90 kg

DRUGS (1)
  1. TRASTUZUMAB. [Suspect]
     Active Substance: TRASTUZUMAB
     Indication: SALIVARY GLAND CANCER
     Dates: start: 20200319, end: 20200324

REACTIONS (5)
  - Thrombocytopenia [None]
  - Drug specific antibody [None]
  - Mouth haemorrhage [None]
  - Haematochezia [None]
  - Platelet count decreased [None]

NARRATIVE: CASE EVENT DATE: 20200324
